FAERS Safety Report 16404536 (Version 10)
Quarter: 2020Q3

REPORT INFORMATION
  Report Type: Spontaneous
  Country: US (occurrence: US)
  Receive Date: 20190607
  Receipt Date: 20200814
  Transmission Date: 20201102
  Serious: Yes (Other)
  Sender: FDA-Public Use
  Company Number: US-PFIZER INC-2019107219

PATIENT
  Age: 79 Year
  Sex: Female
  Weight: 50 kg

DRUGS (6)
  1. TYLENOL [Concomitant]
     Active Substance: ACETAMINOPHEN
     Dosage: 2 DF, 2X/DAY
  2. LYRICA [Suspect]
     Active Substance: PREGABALIN
     Dosage: 25 MG, 3X/DAY
  3. LYRICA [Suspect]
     Active Substance: PREGABALIN
     Dosage: 3 DF, DAILY (THREE A DAY)
  4. LYRICA [Suspect]
     Active Substance: PREGABALIN
     Indication: OSTEOARTHRITIS
     Dosage: 25 MG, 3X/DAY
     Route: 048
     Dates: start: 201807
  5. CELECOXIB. [Concomitant]
     Active Substance: CELECOXIB
     Indication: PAIN
     Dosage: 50 MG, 2X/DAY
     Route: 048
     Dates: start: 201910
  6. LYRICA [Suspect]
     Active Substance: PREGABALIN
     Indication: PAIN
     Dosage: 25 MG, 3X/DAY
     Route: 048
     Dates: start: 2019, end: 2019

REACTIONS (10)
  - Pain in extremity [Not Recovered/Not Resolved]
  - Gait disturbance [Not Recovered/Not Resolved]
  - Arthritis [Unknown]
  - Visual impairment [Unknown]
  - Nasopharyngitis [Unknown]
  - Loss of personal independence in daily activities [Unknown]
  - Rheumatoid arthritis [Unknown]
  - Insomnia [Unknown]
  - Thinking abnormal [Unknown]
  - Hypoacusis [Unknown]

NARRATIVE: CASE EVENT DATE: 2019
